FAERS Safety Report 6121973-5 (Version None)
Quarter: 2009Q1

REPORT INFORMATION
  Report Type: 
  Country: None (occurrence: None)
  Receive Date: 20090316
  Receipt Date: 20090303
  Transmission Date: 20090719
  Serious: Yes (Other)
  Sender: FDA-Public Use
  Company Number: 2009AP000819

PATIENT
  Age: 54 Year
  Sex: Female

DRUGS (1)
  1. KETOCONAZOLE [Suspect]
     Indication: TINEA INFECTION
     Dosage: 200 MG;QD;PO
     Route: 048
     Dates: start: 20090101, end: 20090204

REACTIONS (11)
  - ABDOMINAL DISTENSION [None]
  - BLOOD BILIRUBIN INCREASED [None]
  - CHROMATURIA [None]
  - DYSGRAPHIA [None]
  - FATIGUE [None]
  - LIVER DISORDER [None]
  - MUSCLE SPASMS [None]
  - NAUSEA [None]
  - OCULAR ICTERUS [None]
  - VOMITING [None]
  - YELLOW SKIN [None]
